FAERS Safety Report 5032010-8 (Version None)
Quarter: 2006Q2

REPORT INFORMATION
  Report Type: 
  Country: None (occurrence: None)
  Receive Date: 20060619
  Receipt Date: 20060612
  Transmission Date: 20061013
  Serious: Yes (Other)
  Sender: FDA-Public Use
  Company Number: HQWYE130812JUN06

PATIENT
  Age: 6 Year
  Sex: Female

DRUGS (10)
  1. RAPAMUNE [Suspect]
     Indication: PROPHYLAXIS AGAINST TRANSPLANT REJECTION
     Dosage: SEE IMAGE, ORAL
     Route: 048
     Dates: start: 20051024, end: 20060531
  2. RAPAMUNE [Suspect]
     Indication: PROPHYLAXIS AGAINST TRANSPLANT REJECTION
     Dosage: SEE IMAGE, ORAL
     Route: 048
     Dates: start: 20060601
  3. COZAAR [Concomitant]
  4. CATAPRES [Concomitant]
  5. PLENDIL [Concomitant]
  6. CRESTOR [Concomitant]
  7. MYCOPHENOLIC ACID [Concomitant]
  8. PREDNISONE TAB [Concomitant]
  9. RECORMON (ERYTHROPOIETIN HUMAN) [Concomitant]
  10. IBERET LIQUIDO (ASCORBIC ACID/CYANOCOBALAMIN/DEXPANTHENOL/FERROUS SULF [Concomitant]

REACTIONS (3)
  - ANOREXIA [None]
  - IMMUNOSUPPRESSANT DRUG LEVEL INCREASED [None]
  - WEIGHT DECREASED [None]
